FAERS Safety Report 5031173-8 (Version None)
Quarter: 2006Q2

REPORT INFORMATION
  Report Type: 
  Country: None (occurrence: None)
  Receive Date: 20060621
  Receipt Date: 20060321
  Transmission Date: 20061013
  Serious: Yes (Hospitalization, Other)
  Sender: FDA-Public Use
  Company Number: BE-AMGEN-UK173151

PATIENT
  Sex: Female

DRUGS (4)
  1. ARANESP [Suspect]
     Indication: RENAL FAILURE CHRONIC
     Route: 058
     Dates: start: 20020729
  2. FERROGRAD C [Concomitant]
  3. FOLIC ACID [Concomitant]
  4. ADALAT [Concomitant]

REACTIONS (8)
  - DRUG EXPOSURE DURING PREGNANCY [None]
  - HEPATIC FUNCTION ABNORMAL [None]
  - OEDEMA [None]
  - PERITONEAL DIALYSIS [None]
  - PRE-ECLAMPSIA [None]
  - PREMATURE LABOUR [None]
  - PROTEINURIA [None]
  - RENAL IMPAIRMENT [None]
